FAERS Safety Report 7595847-7 (Version None)
Quarter: 2011Q3

REPORT INFORMATION
  Report Type: 
  Country: None (occurrence: None)
  Receive Date: 20110707
  Receipt Date: 20110705
  Transmission Date: 20111222
  Serious: No
  Sender: FDA-Public Use
  Company Number: US-PFIZER INC-2011150264

PATIENT
  Sex: Female

DRUGS (2)
  1. LIPITOR [Suspect]
     Indication: BLOOD CHOLESTEROL
     Dosage: 40 MG, 1X/DAY
     Route: 048
  2. LIPITOR [Suspect]
     Indication: BLOOD TRIGLYCERIDES INCREASED

REACTIONS (3)
  - BLOOD TRIGLYCERIDES INCREASED [None]
  - MYALGIA [None]
  - BLOOD GLUCOSE INCREASED [None]
